FAERS Safety Report 21951512 (Version 2)
Quarter: 2023Q1

REPORT INFORMATION
  Report Type: Report from Study
  Country: BR (occurrence: None)
  Receive Date: 20230203
  Receipt Date: 20230208
  Transmission Date: 20230418
  Serious: Yes (Hospitalization)
  Sender: FDA-Public Use
  Company Number: 2023A027918

PATIENT
  Age: 39 Year
  Sex: Female

DRUGS (20)
  1. ACALABRUTINIB [Suspect]
     Active Substance: ACALABRUTINIB
     Indication: Diffuse large B-cell lymphoma
     Dosage: 100 MG BID
     Route: 048
     Dates: start: 20220914, end: 20221005
  2. ACALABRUTINIB [Suspect]
     Active Substance: ACALABRUTINIB
     Indication: Diffuse large B-cell lymphoma
     Dosage: 100 MG BID
     Route: 048
     Dates: start: 20221013, end: 20221022
  3. ACALABRUTINIB [Suspect]
     Active Substance: ACALABRUTINIB
     Indication: Diffuse large B-cell lymphoma
     Dosage: 100 MG BID
     Route: 048
     Dates: start: 20221028, end: 20221121
  4. ACALABRUTINIB [Suspect]
     Active Substance: ACALABRUTINIB
     Indication: Diffuse large B-cell lymphoma
     Dosage: 100 MG BID
     Route: 048
     Dates: start: 20221125, end: 20221212
  5. ACALABRUTINIB [Suspect]
     Active Substance: ACALABRUTINIB
     Indication: Diffuse large B-cell lymphoma
     Dosage: 100 MG BID
     Route: 048
     Dates: start: 20221216
  6. CYCLOPHOSPHAMIDE [Suspect]
     Active Substance: CYCLOPHOSPHAMIDE
     Indication: Diffuse large B-cell lymphoma
     Dosage: 750 MG/M2
     Route: 042
     Dates: start: 20220824, end: 20221215
  7. DOXORUBICIN [Suspect]
     Active Substance: DOXORUBICIN
     Indication: Diffuse large B-cell lymphoma
     Dosage: 50 MG/M2
     Route: 042
     Dates: start: 20220824, end: 20221215
  8. VINCRISTINE [Suspect]
     Active Substance: VINCRISTINE
     Indication: Diffuse large B-cell lymphoma
     Dosage: 1.4 MG/2
     Route: 042
     Dates: start: 20220824, end: 20221215
  9. RITUXIMAB [Suspect]
     Active Substance: RITUXIMAB
     Indication: Diffuse large B-cell lymphoma
     Dosage: 375 MG/K2
     Route: 042
     Dates: start: 20220824, end: 20221215
  10. PREDNISONE [Suspect]
     Active Substance: PREDNISONE
     Indication: Diffuse large B-cell lymphoma
     Dosage: 100 MG
     Route: 048
     Dates: start: 20220824, end: 20221220
  11. GRANULOCYTE COLONY-STIMULATING FACTOR NOS [Concomitant]
     Active Substance: GRANULOCYTE COLONY-STIMULATING FACTOR NOS
     Indication: Diffuse large B-cell lymphoma
     Dosage: 6 MG
     Dates: start: 20220825, end: 20221216
  12. LOSARTAN [Concomitant]
     Active Substance: LOSARTAN
     Indication: Hypertension
     Dosage: 50 MG
     Route: 048
     Dates: start: 2022
  13. METOCHLOPRAMIDE + DIMETHASONE + PEPSINE [Concomitant]
     Indication: Gastrooesophageal reflux disease
     Dosage: 97 MG,THREE TIMES PER DAY
     Route: 048
     Dates: start: 2022
  14. FOLIC ACID [Concomitant]
     Active Substance: FOLIC ACID
     Indication: Anaemia
     Dosage: 120 MG DAILY
     Route: 048
     Dates: start: 202205
  15. PREDNISONE [Concomitant]
     Active Substance: PREDNISONE
     Indication: Lymphoma
     Dosage: 200 MG THREE TIMES PER DAY
     Route: 048
     Dates: start: 20220615
  16. SULFAMETHOXAZOLE\TRIMETHOPRIM [Concomitant]
     Active Substance: SULFAMETHOXAZOLE\TRIMETHOPRIM
     Indication: Pneumocystis jirovecii pneumonia
     Dosage: 480 MG TEICE THREE TIMES PER WEEK
     Route: 048
     Dates: start: 20220823
  17. FAMOTIDINE [Concomitant]
     Active Substance: FAMOTIDINE
     Indication: Gastrooesophageal reflux disease
     Dosage: 40 MG DAILY
     Route: 048
     Dates: start: 20221013
  18. DIPHENIDRAMINE [Concomitant]
     Indication: Prophylaxis
     Dosage: 50 MG EVERY C1CD1
     Route: 042
     Dates: start: 20220824
  19. HYDROCORTISONE [Concomitant]
     Active Substance: HYDROCORTISONE
     Indication: Prophylaxis
     Dosage: 200 MG EVERY C1CD1
     Route: 042
     Dates: start: 20220824
  20. ONDANSETRON [Concomitant]
     Active Substance: ONDANSETRON
     Indication: Prophylaxis
     Dosage: 8 MG EVERY C1CD1
     Route: 042
     Dates: start: 20220824

REACTIONS (1)
  - Refeeding syndrome [Recovering/Resolving]

NARRATIVE: CASE EVENT DATE: 20230123
